FAERS Safety Report 5410741-5 (Version None)
Quarter: 2007Q3

REPORT INFORMATION
  Report Type: 
  Country: None (occurrence: None)
  Receive Date: 20070810
  Receipt Date: 20070206
  Transmission Date: 20080115
  Serious: No
  Sender: FDA-Public Use
  Company Number: A0638558A

PATIENT
  Sex: Male

DRUGS (1)
  1. PAXIL CR [Suspect]
     Indication: DRUG USE FOR UNKNOWN INDICATION
     Dosage: 37.5MG PER DAY
     Route: 048
     Dates: start: 20061101

REACTIONS (1)
  - PARANOIA [None]
